FAERS Safety Report 8797583 (Version 3)
Quarter: 2012Q4

REPORT INFORMATION
  Report Type: 
  Country: US (occurrence: US)
  Receive Date: 20120920
  Receipt Date: 20121022
  Transmission Date: 20130627
  Serious: Yes (Hospitalization, Other)
  Sender: FDA-Public Use
  Company Number: US-009507513-1209USA007169

PATIENT
  Sex: Male

DRUGS (3)
  1. PEGINTRON [Suspect]
     Indication: HEPATITIS C
     Dosage: UNK
     Route: 058
     Dates: start: 20120830
  2. REBETOL [Suspect]
     Indication: HEPATITIS C
     Dosage: UNK
     Route: 048
     Dates: start: 20120830
  3. VICTRELIS [Suspect]
     Indication: HEPATITIS C
     Dosage: UNK
     Route: 048
     Dates: start: 20120930

REACTIONS (14)
  - Vomiting [Unknown]
  - Dehydration [Unknown]
  - Blood potassium decreased [Unknown]
  - Agitation [Unknown]
  - Insomnia [Unknown]
  - Poor quality sleep [Unknown]
  - Nausea [Unknown]
  - Agitation [Unknown]
  - Sinusitis [Unknown]
  - Hypotension [Unknown]
  - Ear infection [Unknown]
  - Dehydration [Unknown]
  - Renal disorder [Unknown]
  - Sinusitis [Unknown]
